FAERS Safety Report 24109146 (Version 1)
Quarter: 2024Q3

REPORT INFORMATION
  Report Type: Spontaneous
  Country: CN (occurrence: CN)
  Receive Date: 20240718
  Receipt Date: 20240718
  Transmission Date: 20241016
  Serious: Yes (Hospitalization)
  Sender: STRIDES
  Company Number: CN-STRIDES ARCOLAB LIMITED-2024SP008758

PATIENT
  Age: 7 Year
  Sex: Male
  Weight: 40 kg

DRUGS (3)
  1. PREDNISOLONE [Suspect]
     Active Substance: PREDNISOLONE
     Indication: Still^s disease
     Dosage: 10 MILLIGRAM, TID
     Route: 048
     Dates: start: 2021, end: 2021
  2. PREDNISOLONE [Suspect]
     Active Substance: PREDNISOLONE
     Dosage: UNK, (DOSE REDUCED)
     Route: 065
     Dates: start: 2021, end: 2021
  3. METHOTREXATE [Concomitant]
     Active Substance: METHOTREXATE
     Indication: Still^s disease
     Dosage: 10 MILLIGRAM, ONCE A WEEK
     Route: 065
     Dates: start: 2021

REACTIONS (5)
  - Hyperlipidaemia [Unknown]
  - Weight increased [Recovered/Resolved]
  - Pseudo Cushing^s syndrome [Recovered/Resolved]
  - Compression fracture [Recovered/Resolved]
  - Osteoporosis [Recovered/Resolved]

NARRATIVE: CASE EVENT DATE: 20210101
